FAERS Safety Report 5233491-7 (Version None)
Quarter: 2007Q1

REPORT INFORMATION
  Report Type: 
  Country: None (occurrence: None)
  Receive Date: 20070208
  Receipt Date: 20070130
  Transmission Date: 20070707
  Serious: Yes (Other)
  Sender: FDA-Public Use
  Company Number: ES-BAYER-200710722GDS

PATIENT
  Sex: Female

DRUGS (2)
  1. ACTIRA [Suspect]
     Indication: DRUG USE FOR UNKNOWN INDICATION
     Route: 065
  2. ENALAPRIL 5 [Concomitant]
     Indication: DRUG USE FOR UNKNOWN INDICATION
     Route: 065

REACTIONS (2)
  - ARRHYTHMIA [None]
  - HYPERTENSIVE CRISIS [None]
